FAERS Safety Report 5073793-0 (Version None)
Quarter: 2006Q3

REPORT INFORMATION
  Report Type: 
  Country: None (occurrence: None)
  Receive Date: 20060808
  Receipt Date: 20050519
  Transmission Date: 20061208
  Serious: No
  Sender: FDA-Public Use
  Company Number: US-AMGEN-KDL135006

PATIENT
  Sex: Male

DRUGS (7)
  1. PROCRIT [Suspect]
     Indication: ANAEMIA
     Route: 058
     Dates: start: 20050411
  2. CARDIZEM [Concomitant]
  3. FLOMAX [Concomitant]
  4. VITAMIN B COMPLEX CAP [Concomitant]
  5. PROTONIX [Concomitant]
  6. LANOXIN [Concomitant]
  7. STOOL SOFTENER [Concomitant]

REACTIONS (2)
  - CHILLS [None]
  - PYREXIA [None]
